FAERS Safety Report 23674655 (Version 4)
Quarter: 2024Q3

REPORT INFORMATION
  Report Type: Spontaneous
  Country: US (occurrence: US)
  Receive Date: 20240326
  Receipt Date: 20240710
  Transmission Date: 20241017
  Serious: No
  Sender: KARYOPHARM THERAPEUTICS
  Company Number: US-KARYOPHARM-2024KPT000798

PATIENT

DRUGS (2)
  1. XPOVIO [Suspect]
     Active Substance: SELINEXOR
     Indication: Plasma cell myeloma
     Dosage: 40 MG, WEEKLY
     Route: 048
     Dates: start: 202312
  2. XPOVIO [Suspect]
     Active Substance: SELINEXOR
     Dosage: 40 MG, 1X/2 WEEKS DAY 1 AND 15
     Route: 048
     Dates: start: 202312

REACTIONS (6)
  - Full blood count decreased [Unknown]
  - Somnolence [Not Recovered/Not Resolved]
  - Sleep disorder [Unknown]
  - Nausea [Not Recovered/Not Resolved]
  - Fatigue [Not Recovered/Not Resolved]
  - Diarrhoea [Unknown]

NARRATIVE: CASE EVENT DATE: 20240301
